FAERS Safety Report 19716531 (Version 1)
Quarter: 2021Q3

REPORT INFORMATION
  Report Type: Spontaneous
  Country: DE (occurrence: DE)
  Receive Date: 20210819
  Receipt Date: 20210819
  Transmission Date: 20211014
  Serious: Yes (Hospitalization, Other)
  Sender: FDA-Public Use
  Company Number: DE-SUN PHARMACEUTICAL INDUSTRIES LTD-2021RR-308402

PATIENT
  Age: 59 Year
  Sex: Male
  Weight: 57 kg

DRUGS (7)
  1. CLOPIDOGREL [Suspect]
     Active Substance: CLOPIDOGREL BISULFATE
     Indication: PRODUCT USED FOR UNKNOWN INDICATION
     Dosage: 75 MG, PAUSE
     Route: 065
  2. APIXABAN [Suspect]
     Active Substance: APIXABAN
     Indication: PRODUCT USED FOR UNKNOWN INDICATION
     Dosage: 5 MILLIGRAM, DAILY, 5 MG, 1?0?0?0
     Route: 065
  3. CYANOCOBALAMIN (VITAMIN B12) [Concomitant]
     Indication: PRODUCT USED FOR UNKNOWN INDICATION
     Dosage: SCHEMA ()
     Route: 065
  4. NATRIUMCARBONAT [Concomitant]
     Indication: PRODUCT USED FOR UNKNOWN INDICATION
     Dosage: 1 DOSAGE FORM, BID, 1?0?1?0
     Route: 065
  5. EZETIMIB/SIMVASTATIN [Concomitant]
     Active Substance: EZETIMIBE\SIMVASTATIN
     Indication: PRODUCT USED FOR UNKNOWN INDICATION
     Dosage: 1 DOSAGE FORM, DAILY, 10/80 MG, 0?0?1?0
     Route: 065
  6. ACETYLSALICYLSAURE [Suspect]
     Active Substance: ASPIRIN
     Indication: PRODUCT USED FOR UNKNOWN INDICATION
     Dosage: 100 MG, 1?0?0?0
     Route: 065
  7. FOLSAURE [Concomitant]
     Active Substance: FOLIC ACID
     Indication: PRODUCT USED FOR UNKNOWN INDICATION
     Dosage: 5 MG, SCHEMA
     Route: 065

REACTIONS (8)
  - Lower gastrointestinal haemorrhage [Unknown]
  - Anaemia [Unknown]
  - Abdominal pain [Unknown]
  - Pallor [Unknown]
  - General physical health deterioration [Unknown]
  - Haematochezia [Unknown]
  - Dyspnoea [Unknown]
  - Electrocardiogram abnormal [Unknown]
